FAERS Safety Report 5856066-5 (Version None)
Quarter: 2008Q3

REPORT INFORMATION
  Report Type: 
  Country: None (occurrence: None)
  Receive Date: 20080821
  Receipt Date: 20080808
  Transmission Date: 20090109
  Serious: Yes (Death, Life-Threatening, Hospitalization, Other)
  Sender: FDA-Public Use
  Company Number: 2008-00312

PATIENT
  Age: 65 Year
  Sex: Male

DRUGS (9)
  1. VELCADE [Suspect]
     Indication: MULTIPLE MYELOMA
     Dosage: SEE IMAGE
     Dates: start: 20071004, end: 20071210
  2. VELCADE [Suspect]
     Indication: MULTIPLE MYELOMA
     Dosage: SEE IMAGE
     Dates: start: 20071217, end: 20071231
  3. REVLIMID [Suspect]
     Indication: MULTIPLE MYELOMA
     Dosage: 25 MG
     Dates: start: 20070912, end: 20071007
  4. DECADRON SRC [Concomitant]
  5. NEUPOGEN [Concomitant]
  6. HYTRIN [Concomitant]
  7. CYTOXAN [Concomitant]
  8. ZOMETA [Concomitant]
  9. PRILOSEC [Concomitant]

REACTIONS (33)
  - AGITATION [None]
  - BLOOD PRESSURE ORTHOSTATIC [None]
  - CHILLS [None]
  - DEHYDRATION [None]
  - DERMATITIS BULLOUS [None]
  - DIZZINESS [None]
  - DRUG ERUPTION [None]
  - DRUG INEFFECTIVE [None]
  - DYSPNOEA EXERTIONAL [None]
  - ENDOTRACHEAL INTUBATION COMPLICATION [None]
  - FEBRILE NEUTROPENIA [None]
  - FLUID OVERLOAD [None]
  - HAEMATOCRIT DECREASED [None]
  - HAEMOGLOBIN DECREASED [None]
  - HAEMOPTYSIS [None]
  - HYPOPHAGIA [None]
  - HYPOXIA [None]
  - INJURY [None]
  - METASTASES TO BONE [None]
  - MULTIPLE MYELOMA [None]
  - OXYGEN SATURATION DECREASED [None]
  - PANCYTOPENIA [None]
  - PLEURAL EFFUSION [None]
  - PLEURITIC PAIN [None]
  - PULMONARY EMBOLISM [None]
  - RASH [None]
  - RENAL CYST [None]
  - RENAL TUBULAR NECROSIS [None]
  - SCROTAL OEDEMA [None]
  - SEPSIS [None]
  - SEPTIC SHOCK [None]
  - STEVENS-JOHNSON SYNDROME [None]
  - TACHYCARDIA [None]
